FAERS Safety Report 9174326 (Version 3)
Quarter: 2013Q2

REPORT INFORMATION
  Report Type: Spontaneous
  Country: US (occurrence: US)
  Receive Date: 20130320
  Receipt Date: 20130412
  Transmission Date: 20140414
  Serious: Yes (Life-Threatening, Hospitalization)
  Sender: FDA-Public Use
  Company Number: PHEH2013US006375

PATIENT
  Age: 29 Year
  Sex: Male

DRUGS (8)
  1. FORADIL [Suspect]
     Indication: ASTHMA
     Dosage: 12 UG, BID
     Route: 048
     Dates: start: 2012
  2. FORADIL [Suspect]
     Dosage: 1 DF, Q12 H
     Dates: start: 20121204
  3. WELLBUTRIN [Concomitant]
     Indication: DEPRESSION
     Dosage: 3 DF, Q 24 H
     Route: 048
  4. GABAPENTIN [Concomitant]
     Indication: NERVOUS SYSTEM DISORDER
     Dosage: 2 DF, BID
     Route: 048
  5. VENTOLIN HFA [Concomitant]
     Indication: SKIN DISORDER
     Dosage: 2 PUFFS 4 INTO A DAY
     Route: 048
     Dates: start: 20121204
  6. TRAZODONE [Concomitant]
     Dosage: UNK
  7. CITALOPRAM [Concomitant]
     Indication: DEPRESSION
     Dosage: 1 DF, DAILY
     Route: 048
     Dates: start: 20121018
  8. ADDERALL [Concomitant]
     Indication: ATTENTION DEFICIT/HYPERACTIVITY DISORDER
     Dosage: 1 DF, BID
     Route: 048

REACTIONS (5)
  - Stab wound [Not Recovered/Not Resolved]
  - Apparent death [Not Recovered/Not Resolved]
  - Laryngitis [Unknown]
  - Capsule physical issue [Unknown]
  - Incorrect dose administered [Unknown]
